FAERS Safety Report 5574303-1 (Version None)
Quarter: 2007Q4

REPORT INFORMATION
  Report Type: 
  Country: None (occurrence: None)
  Receive Date: 20071227
  Receipt Date: 20071214
  Transmission Date: 20080405
  Serious: Yes (Other)
  Sender: FDA-Public Use
  Company Number: US-BAYER-US-2007-010108

PATIENT
  Age: 35 Year
  Sex: Female
  Weight: 73 kg

DRUGS (1)
  1. MIRENA [Suspect]
     Indication: CONTRACEPTION
     Route: 015
     Dates: start: 20030617, end: 20070321

REACTIONS (3)
  - NORMAL NEWBORN [None]
  - PREGNANCY WITH CONTRACEPTIVE DEVICE [None]
  - RETAINED PLACENTA OR MEMBRANES [None]
